FAERS Safety Report 10600474 (Version 1)
Quarter: 2014Q4

REPORT INFORMATION
  Report Type: Spontaneous
  Country: KP (occurrence: KP)
  Receive Date: 20141124
  Receipt Date: 20141124
  Transmission Date: 20150529
  Serious: Yes (Hospitalization)
  Sender: FDA-Public Use
  Company Number: KP-CIPLA LTD.-2014KP01975

PATIENT

DRUGS (1)
  1. PRAVASTATIN [Suspect]
     Active Substance: PRAVASTATIN\PRAVASTATIN SODIUM
     Indication: CARDIAC FAILURE CHRONIC
     Dosage: 10 MG, DAILY

REACTIONS (1)
  - Cardiac failure [Unknown]
